FAERS Safety Report 13470738 (Version 1)
Quarter: 2017Q2

REPORT INFORMATION
  Report Type: Report from Study
  Country: CO (occurrence: CO)
  Receive Date: 20170424
  Receipt Date: 20170424
  Transmission Date: 20170830
  Serious: Yes (Death)
  Sender: FDA-Public Use
  Company Number: CO-ROCHE-1924037

PATIENT
  Age: 37 Year
  Sex: Female

DRUGS (1)
  1. AVASTIN [Suspect]
     Active Substance: BEVACIZUMAB
     Indication: CERVIX CARCINOMA
     Route: 042
     Dates: start: 20170308

REACTIONS (1)
  - Death [Fatal]

NARRATIVE: CASE EVENT DATE: 20170407
